FAERS Safety Report 7276460-8 (Version None)
Quarter: 2011Q1

REPORT INFORMATION
  Report Type: 
  Country: None (occurrence: None)
  Receive Date: 20110131
  Receipt Date: 20110120
  Transmission Date: 20110831
  Serious: Yes (Hospitalization, Other)
  Sender: FDA-Public Use
  Company Number: 2010SP063919

PATIENT
  Age: 41 Year
  Sex: Male
  Weight: 107 kg

DRUGS (13)
  1. RAMIPRIL [Concomitant]
  2. ACETYLCYSTEINE [Concomitant]
  3. DOXEPIN [Concomitant]
  4. PANTOPRAZOL [Concomitant]
  5. TRIMIPRAMINE MALEATE [Concomitant]
  6. REMERGIL (MIRTAZAPINE /01293201/) [Suspect]
     Indication: PAIN
     Dosage: (30 MG; HS) (15 MG; HS) (15 MG; HS)
     Dates: start: 20100601, end: 20100902
  7. REMERGIL (MIRTAZAPINE /01293201/) [Suspect]
     Indication: SLEEP DISORDER
     Dosage: (30 MG; HS) (15 MG; HS) (15 MG; HS)
     Dates: start: 20100601, end: 20100902
  8. REMERGIL (MIRTAZAPINE /01293201/) [Suspect]
     Indication: PAIN
     Dosage: (30 MG; HS) (15 MG; HS) (15 MG; HS)
     Dates: start: 20100903, end: 20100907
  9. REMERGIL (MIRTAZAPINE /01293201/) [Suspect]
     Indication: SLEEP DISORDER
     Dosage: (30 MG; HS) (15 MG; HS) (15 MG; HS)
     Dates: start: 20100903, end: 20100907
  10. REMERGIL (MIRTAZAPINE /01293201/) [Suspect]
     Indication: PAIN
     Dosage: (30 MG; HS) (15 MG; HS) (15 MG; HS)
     Dates: start: 20101117, end: 20101203
  11. REMERGIL (MIRTAZAPINE /01293201/) [Suspect]
     Indication: SLEEP DISORDER
     Dosage: (30 MG; HS) (15 MG; HS) (15 MG; HS)
     Dates: start: 20101117, end: 20101203
  12. ALPHA LIPOIC ACID [Concomitant]
  13. PREGABALIN [Concomitant]

REACTIONS (1)
  - RHABDOMYOLYSIS [None]
